FAERS Safety Report 10923248 (Version 6)
Quarter: 2020Q1

REPORT INFORMATION
  Report Type: Spontaneous
  Country: US (occurrence: US)
  Receive Date: 20150317
  Receipt Date: 20200110
  Transmission Date: 20200409
  Serious: Yes (Hospitalization, Other)
  Sender: FDA-Public Use
  Company Number: US-UCBSA-2014014215

PATIENT
  Age: 40 Year
  Sex: Female

DRUGS (3)
  1. CIMZIA [Suspect]
     Active Substance: CERTOLIZUMAB PEGOL
     Indication: CROHN^S DISEASE
     Dosage: 400 MG, EV 4 WEEKS, (EXP DATE: APR-2016, AUG-2017)
     Route: 058
     Dates: start: 20090718, end: 20150730
  2. XANAX [Concomitant]
     Active Substance: ALPRAZOLAM
     Indication: ANXIETY
     Dosage: AS NEEDED
     Route: 048
  3. LIALDA [Concomitant]
     Active Substance: MESALAMINE
     Indication: GASTRIC DISORDER
     Dosage: UNK
     Route: 048

REACTIONS (6)
  - Influenza [Not Recovered/Not Resolved]
  - Frequent bowel movements [Not Recovered/Not Resolved]
  - Ear infection [Not Recovered/Not Resolved]
  - Tuberculosis [Not Recovered/Not Resolved]
  - Abdominal pain [Not Recovered/Not Resolved]
  - Weight decreased [Not Recovered/Not Resolved]

NARRATIVE: CASE EVENT DATE: 20141003
